FAERS Safety Report 12518348 (Version 5)
Quarter: 2016Q3

REPORT INFORMATION
  Report Type: Report from Study
  Country: JP (occurrence: JP)
  Receive Date: 20160630
  Receipt Date: 20160804
  Transmission Date: 20161109
  Serious: Yes (Hospitalization)
  Sender: FDA-Public Use
  Company Number: JP-CELGENEUS-JPN-2016064694

PATIENT
  Age: 62 Year
  Sex: Female
  Weight: 44 kg

DRUGS (40)
  1. LOXOPROFEN [Concomitant]
     Active Substance: LOXOPROFEN
     Indication: BEHCET^S SYNDROME
     Dosage: .25 MILLIGRAM
     Route: 048
     Dates: start: 2010
  2. ADRENALINE [Concomitant]
     Active Substance: EPINEPHRINE
     Indication: SURGERY
     Route: 061
     Dates: start: 20160620, end: 20160620
  3. REMIFENTANIL HYDROCHLORIDE [Concomitant]
     Active Substance: REMIFENTANIL HYDROCHLORIDE
     Indication: SURGERY
     Route: 041
     Dates: start: 20160620, end: 20160620
  4. SUGAMMADEX SODIUM [Concomitant]
     Active Substance: SUGAMMADEX SODIUM
     Indication: SURGERY
     Route: 041
     Dates: start: 20160620, end: 20160620
  5. PROPOFOL. [Concomitant]
     Active Substance: PROPOFOL
     Indication: SURGERY
     Route: 041
     Dates: start: 20160620, end: 20160620
  6. EPHEDRINE. [Concomitant]
     Active Substance: EPHEDRINE
     Indication: SURGERY
     Dosage: 1 GRAM
     Route: 041
     Dates: start: 20160620, end: 20160620
  7. CC-10004 [Suspect]
     Active Substance: APREMILAST
     Route: 048
     Dates: start: 20160513, end: 20160623
  8. OSELTAMIVIR PHOSPHATE. [Concomitant]
     Active Substance: OSELTAMIVIR PHOSPHATE
     Indication: INFLUENZA
     Dosage: 150 MILLIGRAM
     Route: 048
     Dates: start: 20160128, end: 20160202
  9. ACETAMINOPHEN. [Concomitant]
     Active Substance: ACETAMINOPHEN
     Indication: INFLUENZA
     Route: 048
     Dates: start: 20160128, end: 20160201
  10. METOCLOPRAMIDE HYDROCHLORIDE. [Concomitant]
     Active Substance: METOCLOPRAMIDE HYDROCHLORIDE
     Indication: NAUSEA
     Route: 041
     Dates: start: 20160620
  11. TRANEXAMIC ACID. [Concomitant]
     Active Substance: TRANEXAMIC ACID
     Indication: SURGERY
     Route: 041
     Dates: start: 20160620, end: 20160620
  12. HEPARIN SODIUM. [Concomitant]
     Active Substance: HEPARIN SODIUM
     Indication: POSTOPERATIVE CARE
     Dosage: 300 MILLIGRAM
     Route: 041
     Dates: start: 20160621, end: 20160625
  13. ESOMEPRAZOLE MAGNESIUM HYDRATE [Concomitant]
     Indication: GASTRITIS PROPHYLAXIS
     Route: 048
     Dates: start: 20151105
  14. DESFLURANE. [Concomitant]
     Active Substance: DESFLURANE
     Indication: SURGERY
     Route: 055
     Dates: start: 20160620, end: 20160620
  15. LANSOPRAZOLE. [Concomitant]
     Active Substance: LANSOPRAZOLE
     Indication: GASTRITIS PROPHYLAXIS
     Dosage: 750 MILLIGRAM
     Route: 048
     Dates: start: 20160621
  16. DEXTROMETHORPHAN [Concomitant]
     Active Substance: DEXTROMETHORPHAN
     Indication: NASOPHARYNGITIS
     Dosage: 900 MILLIGRAM
     Route: 048
     Dates: start: 20160624
  17. ESOMEPRAZOLE MAGNESIUM HYDRATE [Concomitant]
     Indication: NASOPHARYNGITIS
     Route: 048
     Dates: start: 20151119, end: 20151120
  18. LIDOCAINE/ADRENALINE [Concomitant]
     Indication: SURGERY
     Route: 061
     Dates: start: 20160620, end: 20160620
  19. LIDOCAINE. [Concomitant]
     Active Substance: LIDOCAINE
     Indication: SURGERY
     Route: 061
     Dates: start: 20160620, end: 20160620
  20. ROCURONIUM BROMIDE. [Concomitant]
     Active Substance: ROCURONIUM BROMIDE
     Indication: SURGERY
     Route: 041
     Dates: start: 20160620, end: 20160620
  21. CEFAZOLIN SODIUM. [Concomitant]
     Active Substance: CEFAZOLIN SODIUM
     Indication: INFECTION PROPHYLAXIS
     Dosage: 100 IU (INTERNATIONAL UNIT)
     Route: 041
     Dates: start: 20160620
  22. OLOPATADINE HCL [Concomitant]
     Active Substance: OLOPATADINE HYDROCHLORIDE
     Indication: SEASONAL ALLERGY
     Route: 047
     Dates: start: 20160222
  23. IOVERSOL [Concomitant]
     Active Substance: IOVERSOL
     Indication: SCAN WITH CONTRAST
     Route: 041
     Dates: start: 20160426, end: 20160426
  24. FLURBIPROFEN. [Concomitant]
     Active Substance: FLURBIPROFEN
     Indication: BACK PAIN
     Route: 062
     Dates: start: 20160621, end: 20160625
  25. CC-10004 [Suspect]
     Active Substance: APREMILAST
     Indication: BEHCET^S SYNDROME
     Route: 048
     Dates: start: 20160128, end: 20160402
  26. BROTIZOLAM [Concomitant]
     Active Substance: BROTIZOLAM
     Indication: INSOMNIA
     Route: 048
     Dates: start: 2003
  27. ACETAMINOPHEN. [Concomitant]
     Active Substance: ACETAMINOPHEN
     Indication: PROCEDURAL PAIN
     Route: 041
     Dates: start: 20160620, end: 20160621
  28. LIDOCAINE. [Concomitant]
     Active Substance: LIDOCAINE
     Route: 061
     Dates: start: 20160620, end: 20160620
  29. BENZALKONIUM CHLORIDE. [Concomitant]
     Active Substance: BENZALKONIUM CHLORIDE
     Indication: SURGERY
     Route: 061
     Dates: start: 20160620, end: 20160620
  30. SALICYLAMIDE/ACETAMINOPHEN/ANHYDROUS CAFFEINE/PROMETHAZINE/METHYLENEDI [Concomitant]
     Indication: NASOPHARYNGITIS
     Dosage: 60 MILLIGRAM
     Route: 048
     Dates: start: 20160619
  31. POVIDONE-IODINE. [Concomitant]
     Active Substance: POVIDONE-IODINE
     Indication: SURGERY
     Dosage: 450 MILLIGRAM
     Route: 061
     Dates: start: 20160620, end: 20160620
  32. ACETAMINOPHEN. [Concomitant]
     Active Substance: ACETAMINOPHEN
     Route: 048
     Dates: start: 20160621
  33. FEXOFENADINE HCL [Concomitant]
     Active Substance: FEXOFENADINE HYDROCHLORIDE
     Indication: SEASONAL ALLERGY
     Route: 048
     Dates: start: 20160222
  34. SENNOSIDE [Concomitant]
     Active Substance: SENNOSIDES
     Indication: PRODUCT USED FOR UNKNOWN INDICATION
     Route: 048
     Dates: start: 20160508, end: 20160508
  35. GLYCERIN. [Concomitant]
     Active Substance: GLYCERIN
     Indication: PRODUCT USED FOR UNKNOWN INDICATION
     Route: 054
     Dates: start: 20160509, end: 20160509
  36. CEFDITOREN PIVOXIL. [Concomitant]
     Active Substance: CEFDITOREN PIVOXIL
     Indication: INFECTION PROPHYLAXIS
     Route: 048
     Dates: start: 20160625
  37. MAGMITT [Concomitant]
     Active Substance: MAGNESIUM OXIDE
     Indication: CONSTIPATION
     Route: 048
     Dates: start: 20160707
  38. LOXOPROFEN [Concomitant]
     Active Substance: LOXOPROFEN
     Indication: BACK PAIN
     Route: 048
     Dates: start: 2012
  39. GALLIUM CITRATE [Concomitant]
     Active Substance: GALLIUM CITRATE GA-67
     Indication: IMAGING PROCEDURE
     Route: 041
     Dates: start: 20160507, end: 20160507
  40. FENTANYL. [Concomitant]
     Active Substance: FENTANYL
     Indication: SURGERY
     Dosage: 15 MILLIGRAM
     Route: 041
     Dates: start: 20160620, end: 20160620

REACTIONS (1)
  - Lymph node tuberculosis [Not Recovered/Not Resolved]

NARRATIVE: CASE EVENT DATE: 201603
